FAERS Safety Report 24827254 (Version 2)
Quarter: 2025Q1

REPORT INFORMATION
  Report Type: Spontaneous
  Country: US (occurrence: US)
  Receive Date: 20250109
  Receipt Date: 20250312
  Transmission Date: 20250409
  Serious: No
  Sender: SANOFI AVENTIS
  Company Number: US-SA-2025SA007236

PATIENT
  Sex: Female
  Weight: 21.82 kg

DRUGS (7)
  1. DUPIXENT [Suspect]
     Active Substance: DUPILUMAB
     Indication: Dermatitis atopic
     Dosage: 300 MG, Q4W
     Route: 058
     Dates: end: 20250104
  2. DUPIXENT [Suspect]
     Active Substance: DUPILUMAB
     Dosage: 300 MG, Q4W
     Route: 058
     Dates: start: 2025, end: 202502
  3. MAGNESIUM CITRATE [Concomitant]
     Active Substance: MAGNESIUM CITRATE
  4. HYDROXYZINE HYDROCHLORIDE [Concomitant]
     Active Substance: HYDROXYZINE HYDROCHLORIDE
  5. EPIPEN JR [Concomitant]
     Active Substance: EPINEPHRINE
  6. PREBIOTICS NOS [Concomitant]
  7. VITAMIN D3 [Concomitant]
     Active Substance: CHOLECALCIFEROL

REACTIONS (7)
  - Pyrexia [Unknown]
  - Malaise [Unknown]
  - Dermatitis atopic [Unknown]
  - Eczema [Unknown]
  - Pruritus [Unknown]
  - Product dose omission in error [Unknown]
  - Therapeutic response decreased [Unknown]

NARRATIVE: CASE EVENT DATE: 20250101
